FAERS Safety Report 4295119-2 (Version None)
Quarter: 2004Q1

REPORT INFORMATION
  Report Type: 
  Country: None (occurrence: None)
  Receive Date: 20040212
  Receipt Date: 20040203
  Transmission Date: 20041129
  Serious: No
  Sender: FDA-Public Use
  Company Number: 2003UW15056

PATIENT
  Age: 63 Year
  Sex: Female
  Weight: 61.2356 kg

DRUGS (8)
  1. PRILOSEC [Suspect]
     Indication: ULCER
     Dosage: 20 MG BID PO
     Route: 048
     Dates: start: 20031103, end: 20031112
  2. PRILOSEC [Suspect]
     Dosage: 20 MG BID PO
     Route: 048
     Dates: start: 19970101, end: 19970101
  3. PRILOSEC [Suspect]
     Dosage: 10 MG QD PO
     Route: 048
     Dates: start: 19980101, end: 19980101
  4. ZYPREXA [Concomitant]
  5. CARAFATE [Concomitant]
  6. TOPAMAX [Concomitant]
  7. LEVOTHROID [Concomitant]
  8. DILANTIN [Concomitant]

REACTIONS (11)
  - ABDOMINAL PAIN [None]
  - CONVULSION [None]
  - DIZZINESS [None]
  - DYSKINESIA [None]
  - FEELING ABNORMAL [None]
  - GAIT DISTURBANCE [None]
  - HEADACHE [None]
  - MEMORY IMPAIRMENT [None]
  - MYALGIA [None]
  - PARAESTHESIA [None]
  - SPEECH DISORDER [None]
